FAERS Safety Report 10511270 (Version 1)
Quarter: 2014Q4

REPORT INFORMATION
  Report Type: Spontaneous
  Country: US (occurrence: US)
  Receive Date: 20141010
  Receipt Date: 20141010
  Transmission Date: 20150528
  Serious: Yes (Hospitalization)
  Sender: FDA-Public Use
  Company Number: US-PFIZER INC-2014275842

PATIENT
  Age: 3 Year
  Sex: Male

DRUGS (4)
  1. INFANTS ADVIL CONCENTRATED DROPS [Suspect]
     Active Substance: IBUPROFEN
     Indication: TEETHING
     Dosage: UNK
  2. BABY ORAJEL TEETHING PAIN RELIEF [Suspect]
     Active Substance: BENZOCAINE
     Indication: TEETHING
     Dosage: UNK
  3. BABY ORAJEL TEETHING MEDICINE [Suspect]
     Active Substance: BENZOCAINE
     Indication: TEETHING
     Dosage: UNK
  4. CHILDRENS ADVIL [Concomitant]
     Active Substance: IBUPROFEN
     Dosage: UNK

REACTIONS (3)
  - Eye movement disorder [Unknown]
  - Dyspnoea [Unknown]
  - Moaning [Unknown]
